FAERS Safety Report 4452423-2 (Version None)
Quarter: 2004Q3

REPORT INFORMATION
  Report Type: 
  Country: None (occurrence: None)
  Receive Date: 20040917
  Receipt Date: 20040907
  Transmission Date: 20050211
  Serious: Yes (Other)
  Sender: FDA-Public Use
  Company Number: PHEH2004US09593

PATIENT
  Age: 71 Year
  Sex: Male

DRUGS (15)
  1. ZOMETA [Suspect]
     Indication: BONE DISORDER
     Dosage: 4 MG, MONTHLY
     Dates: start: 20011001, end: 20011101
  2. ZOMETA [Suspect]
     Dosage: 4 MG, MONTHLY
     Dates: start: 20020301
  3. AREDIA [Suspect]
     Dosage: 120 MG, MONTHLY
     Dates: start: 20020301
  4. AREDIA [Suspect]
     Dosage: 90 MG, MONTHLY
     Dates: start: 20000501, end: 20010601
  5. LIPITOR [Concomitant]
     Dosage: 20 MG, UNK
  6. CELEBREX [Concomitant]
     Dosage: 200 MG, BID
  7. ROCALTROL [Concomitant]
  8. ARODART [Concomitant]
  9. GLUCOPHAGE [Concomitant]
  10. FOLATE SODIUM [Concomitant]
     Dosage: 80 UG, UNK
  11. PROSCAR [Concomitant]
  12. LUPRON [Concomitant]
  13. LAXITEX [Concomitant]
  14. THALIDOMIDE [Concomitant]
  15. NIZORAL [Concomitant]

REACTIONS (6)
  - BONE DISORDER [None]
  - CEREBROVASCULAR ACCIDENT [None]
  - DENTAL CARIES [None]
  - HYPERCOAGULATION [None]
  - HYPERTENSION [None]
  - PERIODONTAL DESTRUCTION [None]
